FAERS Safety Report 12673035 (Version 1)
Quarter: 2016Q3

REPORT INFORMATION
  Report Type: Spontaneous
  Country: US (occurrence: US)
  Receive Date: 20160822
  Receipt Date: 20160822
  Transmission Date: 20161109
  Serious: No
  Sender: FDA-Public Use
  Company Number: US-TAKEDA-2016MPI007234

PATIENT
  Age: 65 Year
  Sex: Female

DRUGS (1)
  1. NINLARO [Suspect]
     Active Substance: IXAZOMIB
     Indication: PLASMA CELL LEUKAEMIA
     Dosage: 4 MG, UNK
     Route: 048
     Dates: start: 20160520

REACTIONS (2)
  - Night sweats [Unknown]
  - Constipation [Unknown]

NARRATIVE: CASE EVENT DATE: 20160810
